FAERS Safety Report 19248935 (Version 2)
Quarter: 2022Q1

REPORT INFORMATION
  Report Type: Spontaneous
  Country: CA (occurrence: CA)
  Receive Date: 20210512
  Receipt Date: 20220321
  Transmission Date: 20220423
  Serious: Yes (Other)
  Sender: FDA-Public Use
  Company Number: CA-PFIZER INC-2020108645

PATIENT
  Age: 65 Year
  Sex: Male

DRUGS (5)
  1. XELJANZ XR [Suspect]
     Active Substance: TOFACITINIB CITRATE
     Indication: Rheumatoid arthritis
     Dosage: 11 MG, 1X/DAY
     Route: 048
     Dates: start: 20200210, end: 202003
  2. XELJANZ XR [Suspect]
     Active Substance: TOFACITINIB CITRATE
     Dosage: 11 MG, 1X/DAY
     Route: 048
     Dates: start: 202003, end: 2021
  3. XELJANZ XR [Suspect]
     Active Substance: TOFACITINIB CITRATE
     Dosage: 11 MG, 1X/DAY
     Route: 048
     Dates: start: 202104, end: 2022
  4. METHOTREXATE [Concomitant]
     Active Substance: METHOTREXATE
     Indication: Rheumatoid arthritis
     Dosage: 15 MG, WEEKLY
     Route: 048
  5. SIMPONI [Concomitant]
     Active Substance: GOLIMUMAB
     Dosage: 50 MG, UNK (Q 3 WEEKS)
     Route: 058

REACTIONS (16)
  - Rheumatoid arthritis [Unknown]
  - Pulmonary cavitation [Unknown]
  - Diabetes mellitus inadequate control [Unknown]
  - Drug ineffective [Unknown]
  - Rash [Recovering/Resolving]
  - Urticaria [Unknown]
  - Pruritus [Unknown]
  - Burning sensation [Unknown]
  - Feeling abnormal [Unknown]
  - Erythema [Unknown]
  - Skin mass [Unknown]
  - Exposure to toxic agent [Unknown]
  - Product dose omission issue [Unknown]
  - Lung disorder [Unknown]
  - C-reactive protein increased [Unknown]
  - Glycosylated haemoglobin increased [Unknown]

NARRATIVE: CASE EVENT DATE: 20200301
